FAERS Safety Report 9634109 (Version 1)
Quarter: 2013Q4

REPORT INFORMATION
  Report Type: Spontaneous
  Country: US (occurrence: US)
  Receive Date: 20131021
  Receipt Date: 20131021
  Transmission Date: 20140711
  Serious: No
  Sender: FDA-Public Use
  Company Number: US-PFIZER INC-2013296301

PATIENT
  Age: 57 Year
  Sex: Male
  Weight: 90.7 kg

DRUGS (6)
  1. CORTISONE [Suspect]
     Indication: URTICARIA
     Dosage: UNK
     Dates: start: 2013
  2. CORTISONE [Suspect]
     Indication: RASH MACULAR
  3. CORTISONE [Suspect]
     Indication: RASH PAPULAR
  4. BENADRYL [Suspect]
     Indication: URTICARIA
     Dosage: UNK
     Dates: start: 2013
  5. BENADRYL [Suspect]
     Indication: RASH MACULAR
  6. BENADRYL [Suspect]
     Indication: RASH PAPULAR

REACTIONS (1)
  - Drug ineffective [Unknown]
